FAERS Safety Report 18728234 (Version 2)
Quarter: 2021Q1

REPORT INFORMATION
  Report Type: Other
  Country: CA (occurrence: CA)
  Receive Date: 20210111
  Receipt Date: 20210305
  Transmission Date: 20210419
  Serious: Yes (Other)
  Sender: FDA-Public Use
  Company Number: CA-CELLTRION INC.-2021CA000119

PATIENT

DRUGS (31)
  1. TRASTUZUMAB (UNKNOWN) [Suspect]
     Active Substance: TRASTUZUMAB
     Indication: BREAST CANCER
     Dosage: 472 MILLIGRAM, 1 EVERY 3 WEEKS
     Route: 042
  2. HEPARIN [Concomitant]
     Active Substance: HEPARIN SODIUM
     Route: 042
  3. LETROZOLE. [Concomitant]
     Active Substance: LETROZOLE
  4. MIDOSTAURIN [Concomitant]
     Active Substance: MIDOSTAURIN
     Dosage: 100 MILLIGRAM
     Route: 065
  5. PROCHLORPERAZINE. [Concomitant]
     Active Substance: PROCHLORPERAZINE
     Route: 065
  6. PERJETA [Suspect]
     Active Substance: PERTUZUMAB
     Indication: BREAST CANCER
     Dosage: UNK
     Route: 042
  7. BETHANECHOL [Concomitant]
     Active Substance: BETHANECHOL
     Dosage: 10 MILLIGRAM, 3 EVERY 1 DAYS
     Route: 065
  8. CETIRIZINE [Concomitant]
     Active Substance: CETIRIZINE HYDROCHLORIDE
     Dosage: 20 MILLIGRAM
     Route: 048
  9. CHOLECALCIFEROL [Concomitant]
     Active Substance: CHOLECALCIFEROL
     Route: 065
  10. METFORMIN [Concomitant]
     Active Substance: METFORMIN HYDROCHLORIDE
     Dosage: 500 MILLIGRAM, 2 EVERY 2 DAYS
     Route: 065
  11. TRASTUZUMAB (UNKNOWN) [Suspect]
     Active Substance: TRASTUZUMAB
     Dosage: UNK
     Route: 042
  12. ABRAXANE [Concomitant]
     Active Substance: PACLITAXEL
     Indication: BREAST CANCER
     Dosage: UNK
     Route: 065
  13. ACETAMINOPHEN. [Concomitant]
     Active Substance: ACETAMINOPHEN
     Dosage: 1000 MILLIGRAM, 1 EVERY 6 HOURS
     Route: 048
  14. HYDROCORTISONE. [Concomitant]
     Active Substance: HYDROCORTISONE
  15. SUCRALFATE. [Concomitant]
     Active Substance: SUCRALFATE
  16. VENTOLIN [Concomitant]
     Active Substance: ALBUTEROL SULFATE
  17. ATARAX [Concomitant]
     Active Substance: HYDROXYZINE HYDROCHLORIDE
     Dosage: 100 MILLIGRAM, 4 EVERY 1 DAYS
     Route: 065
  18. ATARAX [Concomitant]
     Active Substance: HYDROXYZINE HYDROCHLORIDE
     Dosage: 50 MILLIGRAM
     Route: 065
  19. DOXORUBICIN [Concomitant]
     Active Substance: DOXORUBICIN
     Indication: BREAST CANCER
  20. EPIPEN JR [Concomitant]
     Active Substance: EPINEPHRINE
     Dosage: 0.3 MILLIGRAM
     Route: 065
  21. FAMOTIDINE. [Concomitant]
     Active Substance: FAMOTIDINE
     Dosage: 40 MILLIGRAM, 2 EVERY 1 DAY
     Route: 065
  22. FUROSEMIDE. [Concomitant]
     Active Substance: FUROSEMIDE
     Route: 048
  23. ULTRAM [Concomitant]
     Active Substance: TRAMADOL HYDROCHLORIDE
     Dosage: 50 MILLIGRAM
     Route: 065
  24. ACETAMINOPHEN. [Concomitant]
     Active Substance: ACETAMINOPHEN
     Dosage: 650 MILLIGRAM, 1 EVERY 6 HOURS
     Route: 048
  25. CYCLOPHOSPHAMIDE. [Concomitant]
     Active Substance: CYCLOPHOSPHAMIDE
     Indication: BREAST CANCER
  26. BENADRYL [Concomitant]
     Active Substance: DIPHENHYDRAMINE HYDROCHLORIDE
  27. DIMENHYDRINATE. [Concomitant]
     Active Substance: DIMENHYDRINATE
     Indication: PREMEDICATION
     Dosage: 50 MILLIGRAM
     Route: 048
  28. LOPERAMIDE [Concomitant]
     Active Substance: LOPERAMIDE
     Dosage: 2 MILLIGRAM, 3 EVERY 1 DAYS
     Route: 065
  29. ROSUVASTATIN. [Concomitant]
     Active Substance: ROSUVASTATIN
     Dosage: 10 MILLIGRAM, 1 EVERY 1 DAYS
     Route: 065
  30. SALBUTAMOL [Concomitant]
     Active Substance: ALBUTEROL
     Dosage: 5 MILLIGRAM
     Route: 065
  31. SENNA ALEXANDRINA [Concomitant]
     Active Substance: SENNA LEAF

REACTIONS (16)
  - Alanine aminotransferase increased [Recovered/Resolved]
  - Gamma-glutamyltransferase increased [Recovered/Resolved]
  - White blood cell count decreased [Recovered/Resolved]
  - Aspartate aminotransferase increased [Recovered/Resolved]
  - Blood sodium decreased [Recovered/Resolved]
  - Haemangioma [Recovered/Resolved]
  - Lacrimation increased [Recovered/Resolved]
  - Blood lactate dehydrogenase increased [Recovered/Resolved]
  - Haemoglobin decreased [Recovered/Resolved]
  - Red blood cell count decreased [Recovered/Resolved]
  - Off label use [Unknown]
  - Swelling face [Recovered/Resolved]
  - Diarrhoea [Recovered/Resolved]
  - Haematocrit decreased [Recovered/Resolved]
  - Vertebral lesion [Recovered/Resolved]
  - Flushing [Recovered/Resolved]
